FAERS Safety Report 15565782 (Version 1)
Quarter: 2018Q4

REPORT INFORMATION
  Report Type: Spontaneous
  Country: US (occurrence: US)
  Receive Date: 20181030
  Receipt Date: 20181030
  Transmission Date: 20190205
  Serious: Yes (Hospitalization)
  Sender: FDA-Public Use
  Company Number: None

PATIENT
  Sex: Female

DRUGS (10)
  1. FLUOXETINE [Concomitant]
     Active Substance: FLUOXETINE HYDROCHLORIDE
  2. DRYSOL [Concomitant]
     Active Substance: ALUMINUM CHLORIDE
  3. ENBREL [Suspect]
     Active Substance: ETANERCEPT
     Indication: PSORIASIS
     Dosage: ?          OTHER FREQUENCY:ONCE WEEKLY;?
     Route: 058
     Dates: start: 20180420
  4. BUSPIRONE [Concomitant]
     Active Substance: BUSPIRONE HYDROCHLORIDE
  5. NAPROXEN. [Concomitant]
     Active Substance: NAPROXEN
  6. ACETAMINOPHIN [Concomitant]
  7. HUMIRA [Concomitant]
     Active Substance: ADALIMUMAB
  8. LORATADINE. [Concomitant]
     Active Substance: LORATADINE
  9. SULFASALAZINE. [Concomitant]
     Active Substance: SULFASALAZINE
  10. GUANFACINE. [Concomitant]
     Active Substance: GUANFACINE

REACTIONS (2)
  - Cellulitis [None]
  - Disease progression [None]
